FAERS Safety Report 7241786-0 (Version None)
Quarter: 2011Q1

REPORT INFORMATION
  Report Type: 
  Country: None (occurrence: None)
  Receive Date: 20110124
  Receipt Date: 20110117
  Transmission Date: 20110831
  Serious: Yes (Hospitalization)
  Sender: FDA-Public Use
  Company Number: JP-GENENTECH-312518

PATIENT
  Age: 70 Year
  Sex: Male

DRUGS (5)
  1. CYCLOPHOSPHAMIDE [Concomitant]
     Indication: LYMPHOMA
  2. VINCRISTINE [Concomitant]
     Indication: LYMPHOMA
  3. PREDNISOLONE [Concomitant]
     Indication: LYMPHOMA
  4. RITUXIMAB [Suspect]
     Indication: LYMPHOMA
     Dosage: 375 MG/M2, UNK
     Route: 042
  5. PIRARUBICIN [Concomitant]
     Indication: LYMPHOMA

REACTIONS (2)
  - RESPIRATORY DISORDER [None]
  - PLEURAL EFFUSION [None]
